FAERS Safety Report 16904667 (Version 5)
Quarter: 2019Q4

REPORT INFORMATION
  Report Type: Report from Study
  Country: CA (occurrence: CA)
  Receive Date: 20191010
  Receipt Date: 20191031
  Transmission Date: 20200122
  Serious: Yes (Hospitalization)
  Sender: FDA-Public Use
  Company Number: CA-JNJFOC-20191006396

PATIENT
  Age: 69 Year
  Sex: Female
  Weight: 71.6 kg

DRUGS (2)
  1. STELARA [Suspect]
     Active Substance: USTEKINUMAB
     Route: 058
     Dates: start: 201205
  2. STELARA [Suspect]
     Active Substance: USTEKINUMAB
     Indication: PSORIASIS
     Route: 058
     Dates: start: 200401, end: 201006

REACTIONS (1)
  - Squamous cell carcinoma of lung [Recovered/Resolved with Sequelae]

NARRATIVE: CASE EVENT DATE: 20190523
